FAERS Safety Report 10716141 (Version 1)
Quarter: 2015Q1

REPORT INFORMATION
  Report Type: Spontaneous
  Country: US (occurrence: US)
  Receive Date: 20150116
  Receipt Date: 20150116
  Transmission Date: 20150721
  Serious: No
  Sender: FDA-Public Use
  Company Number: US-BAYER-2015-005289

PATIENT
  Age: 55 Year
  Sex: Female
  Weight: 47 kg

DRUGS (3)
  1. ALEVE [Suspect]
     Active Substance: NAPROXEN SODIUM
     Indication: HEADACHE
     Dosage: 1 DF, QD
     Route: 048
     Dates: start: 2010, end: 2010
  2. BAYER GENUINE ASPIRIN [Suspect]
     Active Substance: ASPIRIN
     Dosage: UNK
  3. ASPIRIN. [Concomitant]
     Active Substance: ASPIRIN

REACTIONS (3)
  - Abdominal discomfort [Recovered/Resolved]
  - Drug ineffective [None]
  - Drug administered to patient of inappropriate age [None]

NARRATIVE: CASE EVENT DATE: 2010
